FAERS Safety Report 5628843-7 (Version None)
Quarter: 2008Q1

REPORT INFORMATION
  Report Type: 
  Country: None (occurrence: None)
  Receive Date: 20080214
  Receipt Date: 20080129
  Transmission Date: 20080703
  Serious: Yes (Hospitalization, Other)
  Sender: FDA-Public Use
  Company Number: CC08-71

PATIENT
  Sex: Male

DRUGS (1)
  1. PRIMATENE MIST [Suspect]
     Indication: DYSPNOEA
     Dosage: 2 ACTUATIONS AS NEEDED
     Dates: start: 20061223

REACTIONS (2)
  - AMPHETAMINES POSITIVE [None]
  - CARDIAC ARREST [None]
